FAERS Safety Report 12856925 (Version 1)
Quarter: 2016Q4

REPORT INFORMATION
  Report Type: Spontaneous
  Country: US (occurrence: US)
  Receive Date: 20161018
  Receipt Date: 20161018
  Transmission Date: 20170207
  Serious: Yes (Life-Threatening)
  Sender: FDA-Public Use
  Company Number: None

PATIENT
  Age: 68 Year
  Sex: Female

DRUGS (7)
  1. ADR FORMULA [Concomitant]
  2. SELENIUM [Concomitant]
     Active Substance: SELENIUM
  3. VITAMIN D [Concomitant]
     Active Substance: CHOLECALCIFEROL
  4. AMITRIPTYLINE 25MG NORTHSTAR [Suspect]
     Active Substance: AMITRIPTYLINE
     Indication: PRODUCT USED FOR UNKNOWN INDICATION
     Dosage: 75MG (3 TABLETS) AT BEDTIME BY MOUTH
     Route: 048
     Dates: start: 20160924
  5. MVI [Concomitant]
     Active Substance: VITAMINS
  6. RHODIOLA [Concomitant]
     Active Substance: HERBALS
  7. VITAMIN C [Concomitant]
     Active Substance: ASCORBIC ACID

REACTIONS (2)
  - Nausea [None]
  - Communication disorder [None]

NARRATIVE: CASE EVENT DATE: 20160924
